FAERS Safety Report 7659310-7 (Version None)
Quarter: 2011Q3

REPORT INFORMATION
  Report Type: 
  Country: None (occurrence: None)
  Receive Date: 20110805
  Receipt Date: 20110726
  Transmission Date: 20111222
  Serious: Yes (Hospitalization)
  Sender: FDA-Public Use
  Company Number: US-ROCHE-793568

PATIENT
  Age: 61 Year
  Sex: Female

DRUGS (3)
  1. BEVACIZUMAB [Suspect]
     Indication: ENDOMETRIAL CANCER
     Dosage: LAST DOSE PRIOR TO SAE: 21 DECEMBER 2010, DOSE:1987 MG, CYCLICAL
     Route: 042
     Dates: start: 20101221
  2. CARBOPLATIN [Suspect]
     Indication: ENDOMETRIAL CANCER
     Dosage: CYCLICAL,LAST DOSE PRIOR TO SAE: 21 DECEMBER 2010
     Route: 042
     Dates: start: 20101221
  3. IXABEPILONE [Suspect]
     Indication: ENDOMETRIAL CANCER
     Dosage: 30 MLILGRAM/ SQ METER, CYCLICAL,LAST DOSE PRIOR TO SAE: 21 DECEMBER 2010
     Route: 042
     Dates: start: 20101221

REACTIONS (8)
  - NEUTROPHIL COUNT DECREASED [None]
  - WHITE BLOOD CELL COUNT DECREASED [None]
  - DEHYDRATION [None]
  - HYPOKALAEMIA [None]
  - SINUS BRADYCARDIA [None]
  - URINARY TRACT INFECTION [None]
  - HYPOCALCAEMIA [None]
  - PLATELET COUNT DECREASED [None]
